FAERS Safety Report 5248207-8 (Version None)
Quarter: 2007Q1

REPORT INFORMATION
  Report Type: 
  Country: None (occurrence: None)
  Receive Date: 20070227
  Receipt Date: 20060720
  Transmission Date: 20070707
  Serious: No
  Sender: FDA-Public Use
  Company Number: US-BRISTOL-MYERS SQUIBB COMPANY-13448451

PATIENT
  Age: 66 Year
  Sex: Female
  Weight: 74 kg

DRUGS (4)
  1. METFORMIN HCL [Suspect]
  2. BYETTA [Suspect]
     Indication: DIABETES MELLITUS NON-INSULIN-DEPENDENT
     Route: 058
     Dates: start: 20051101
  3. NATEGLINIDE [Concomitant]
     Dates: start: 20051201
  4. PIOGLITAZONE HCL [Concomitant]
     Dates: start: 20051201

REACTIONS (5)
  - BLOOD CREATININE INCREASED [None]
  - DECREASED APPETITE [None]
  - URINARY TRACT INFECTION [None]
  - WEIGHT DECREASED [None]
  - WEIGHT INCREASED [None]
